FAERS Safety Report 18730451 (Version 1)
Quarter: 2021Q1

REPORT INFORMATION
  Report Type: Spontaneous
  Country: CA (occurrence: CA)
  Receive Date: 20210112
  Receipt Date: 20210112
  Transmission Date: 20210419
  Serious: Yes (Hospitalization)
  Sender: FDA-Public Use
  Company Number: NVSC2020CA027037

PATIENT
  Age: 9 Year
  Sex: Male
  Weight: 28.6 kg

DRUGS (28)
  1. CYCLOPHOSPHAMIDE. [Suspect]
     Active Substance: CYCLOPHOSPHAMIDE
     Dosage: 240 MG/M2 (DAY 1?5 OF EACH 21 DAY CYCLE)
     Route: 042
     Dates: start: 20200819, end: 20200914
  2. VENETOCLAX. [Suspect]
     Active Substance: VENETOCLAX
     Dosage: 170 MG, QD (1 IN 1 D)
     Route: 048
     Dates: start: 20200817, end: 20200817
  3. LEVOFLOXACIN. [Concomitant]
     Active Substance: LEVOFLOXACIN
     Indication: INFECTION PROPHYLAXIS
     Dosage: 250 MG, QD
     Route: 048
     Dates: start: 20200728
  4. CHOLECALCIFEROL [Concomitant]
     Active Substance: CHOLECALCIFEROL
     Indication: SUPPLEMENTATION THERAPY
     Dosage: 400 IU, QD
     Route: 048
     Dates: start: 20190508
  5. TRIMETHOPRIM SULFAMETHOXAZOLE [Concomitant]
     Active Substance: SULFAMETHOXAZOLE\TRIMETHOPRIM
     Indication: INFECTION PROPHYLAXIS
     Dosage: UNK
     Route: 065
     Dates: start: 201904
  6. MORPHINE SULFATE. [Concomitant]
     Active Substance: MORPHINE SULFATE
     Indication: PAIN MANAGEMENT
     Dosage: 5 MG, PRN
     Route: 048
     Dates: start: 20200810
  7. MORPHINE SULFATE. [Concomitant]
     Active Substance: MORPHINE SULFATE
     Dosage: 15 MG, BID
     Route: 048
     Dates: start: 20201001
  8. CYCLOPHOSPHAMIDE. [Suspect]
     Active Substance: CYCLOPHOSPHAMIDE
     Indication: RECURRENT CANCER
     Dosage: UNK
     Route: 042
     Dates: start: 20191218
  9. ONDANSETRON [Concomitant]
     Active Substance: ONDANSETRON
     Indication: PROPHYLAXIS OF NAUSEA AND VOMITING
     Dosage: 4 MG, Q8H (PRN)
     Route: 048
     Dates: start: 20191218
  10. TOPOTECAN HYDROCHLORIDE. [Suspect]
     Active Substance: TOPOTECAN HYDROCHLORIDE
     Dosage: 0.71 MG/M2 (DAY 1?5 OF EACH 21 DAY CYCLE)
     Route: 042
     Dates: start: 20200819, end: 20200914
  11. TOPOTECAN HYDROCHLORIDE. [Suspect]
     Active Substance: TOPOTECAN HYDROCHLORIDE
     Dosage: 0.75 MG/M2 (DAY 1?5 OF EACH 21 DAY CYCLE)
     Route: 042
     Dates: start: 20201112
  12. PALONOSETRON. [Concomitant]
     Active Substance: PALONOSETRON HYDROCHLORIDE
     Dosage: 0.5 MG, QD
     Route: 042
     Dates: start: 20200821
  13. VENETOCLAX. [Suspect]
     Active Substance: VENETOCLAX
     Indication: RECURRENT CANCER
     Dosage: 80 MG, QD
     Route: 048
     Dates: start: 20191216, end: 20191216
  14. VENETOCLAX. [Suspect]
     Active Substance: VENETOCLAX
     Dosage: 250 MG, QD (1 IN 1 D)
     Route: 048
     Dates: start: 20200818
  15. BACTRIM [Concomitant]
     Active Substance: SULFAMETHOXAZOLE\TRIMETHOPRIM
     Indication: PNEUMOCYSTIS JIROVECII PNEUMONIA
     Dosage: 80 MG, TIW
     Route: 048
     Dates: start: 201904
  16. VENETOCLAX. [Suspect]
     Active Substance: VENETOCLAX
     Dosage: 170 MG, QD (10 DAYS OF EACH 21 DAYS OF CYCLE )
     Route: 048
     Dates: start: 20191217
  17. TOPOTECAN HYDROCHLORIDE. [Suspect]
     Active Substance: TOPOTECAN HYDROCHLORIDE
     Indication: RECURRENT CANCER
     Dosage: 0.75 MG/M2
     Route: 042
     Dates: start: 20191218
  18. VIGRAN [Concomitant]
     Active Substance: VITAMINS
     Indication: SUPPLEMENTATION THERAPY
     Dosage: 2 GUMMIES, QD
     Route: 048
     Dates: start: 2019
  19. LANSOPRAZOLE. [Concomitant]
     Active Substance: LANSOPRAZOLE
     Indication: GASTRITIS PROPHYLAXIS
     Dosage: 30 MG, QD
     Route: 048
     Dates: start: 20200713
  20. TOPOTECAN HYDROCHLORIDE. [Suspect]
     Active Substance: TOPOTECAN HYDROCHLORIDE
     Dosage: 0.74 MG/M2 (DAY 1?5 OF EACH 21 DAY CYCLE)
     Route: 042
     Dates: start: 20201001, end: 20201026
  21. CYCLOPHOSPHAMIDE. [Suspect]
     Active Substance: CYCLOPHOSPHAMIDE
     Dosage: 250 MG/M2 (DAY 1?5 OF EACH 21 DAY CYCLE)
     Route: 042
     Dates: start: 20201001
  22. GABAPENTIN. [Concomitant]
     Active Substance: GABAPENTIN
     Indication: NEURALGIA
     Dosage: 300 MG, TID
     Route: 048
     Dates: start: 20191212
  23. DEXAMETHASONE. [Concomitant]
     Active Substance: DEXAMETHASONE
     Indication: PROPHYLAXIS OF NAUSEA AND VOMITING
     Dosage: 4 MG, BID
     Route: 048
     Dates: start: 20191218
  24. CHOLECALCIFEROL [Concomitant]
     Active Substance: CHOLECALCIFEROL
     Indication: VITAMIN SUPPLEMENTATION
     Dosage: 3000 IU
     Route: 048
     Dates: start: 20200813
  25. EICOSAPEN [Concomitant]
     Indication: SUPPLEMENTATION THERAPY
     Dosage: 3 GUMMIES, QD
     Route: 048
     Dates: start: 20190507
  26. MACROGOL 3350 [Concomitant]
     Active Substance: POLYETHYLENE GLYCOL 3350
     Indication: CONSTIPATION PROPHYLAXIS
     Dosage: 7.5 MG, QD
     Route: 048
     Dates: start: 20191209
  27. TRIMETHOPRIM SULFAMETHOXAZOLE [Concomitant]
     Active Substance: SULFAMETHOXAZOLE\TRIMETHOPRIM
     Dosage: 120 MG, QOD
     Route: 048
     Dates: start: 20200810
  28. PALONOSETRON. [Concomitant]
     Active Substance: PALONOSETRON HYDROCHLORIDE
     Indication: PROPHYLAXIS OF NAUSEA AND VOMITING
     Dosage: 0.5 MG, QD
     Route: 042
     Dates: start: 20200819, end: 20200819

REACTIONS (6)
  - Haematuria [Not Recovered/Not Resolved]
  - Haemorrhage urinary tract [Unknown]
  - Upper respiratory tract infection [Unknown]
  - Febrile neutropenia [Recovered/Resolved]
  - Product use issue [Unknown]
  - Pyrexia [Unknown]

NARRATIVE: CASE EVENT DATE: 20191227
